FAERS Safety Report 22832468 (Version 2)
Quarter: 2023Q4

REPORT INFORMATION
  Report Type: Spontaneous
  Country: CA (occurrence: CA)
  Receive Date: 20230817
  Receipt Date: 20231127
  Transmission Date: 20240110
  Serious: Yes (Other)
  Sender: FDA-Public Use
  Company Number: CA-BAXTER-2023BAX028458AA

PATIENT
  Age: 61 Year
  Sex: Female

DRUGS (11)
  1. DOXORUBICIN [Suspect]
     Active Substance: DOXORUBICIN
     Indication: Breast cancer female
     Dosage: UNK
     Route: 065
  2. CARBOPLATIN [Suspect]
     Active Substance: CARBOPLATIN
     Indication: Breast cancer female
     Dosage: UNK, DOSAGE FORM: SOLUTION INTRAVENOUS
     Route: 065
  3. CYTOXAN [Suspect]
     Active Substance: CYCLOPHOSPHAMIDE
     Indication: Breast cancer female
     Dosage: UNK, DOSAGE FORM: NOT SPECIFIED
     Route: 065
  4. PEMBROLIZUMAB [Suspect]
     Active Substance: PEMBROLIZUMAB
     Indication: Product used for unknown indication
     Dosage: 200 MG, 1 EVERY 3 WEEK, DOSAGE FORM: SOLUTION FOR INJECTION
     Route: 042
  5. PEMBROLIZUMAB [Suspect]
     Active Substance: PEMBROLIZUMAB
     Dosage: 200 MG, 1 EVERY 3 WEEK, DOSAGE FORM: SOLUTION FOR INJECTION
     Route: 042
  6. PEMBROLIZUMAB [Suspect]
     Active Substance: PEMBROLIZUMAB
     Dosage: 200 MG, 1 EVERY 3 WEEK, DOSAGE FORM: SOLUTION FOR INJECTION
     Route: 042
  7. PEMBROLIZUMAB [Suspect]
     Active Substance: PEMBROLIZUMAB
     Dosage: 200 MG, 1 EVERY 3 WEEK, DOSAGE FORM: SOLUTION FOR INJECTION
     Route: 042
  8. PEMBROLIZUMAB [Suspect]
     Active Substance: PEMBROLIZUMAB
     Dosage: 200 MG, 1 EVERY 3 WEEK, DOSAGE FORM: SOLUTION FOR INJECTION
     Route: 042
  9. PEMBROLIZUMAB [Suspect]
     Active Substance: PEMBROLIZUMAB
     Dosage: 200 MG, 1 EVERY 3 WEEK
     Route: 042
  10. TAXOL [Suspect]
     Active Substance: PACLITAXEL
     Indication: Product used for unknown indication
     Dosage: UNK, DOSAGE FORM: SOLUTION INTRAVENOUS
     Route: 065
  11. CANDESARTAN [Suspect]
     Active Substance: CANDESARTAN
     Indication: Product used for unknown indication
     Dosage: 8.0 MG, 1 EVERY 1 DAYS
     Route: 048

REACTIONS (18)
  - Central venous catheterisation [Unknown]
  - Gait disturbance [Unknown]
  - Thyroid disorder [Unknown]
  - Hyperthyroidism [Unknown]
  - Weight fluctuation [Unknown]
  - Product use issue [Unknown]
  - Hypothyroidism [Unknown]
  - Malaise [Unknown]
  - Anxiety [Unknown]
  - Pain [Unknown]
  - Depressed mood [Unknown]
  - Cystitis [Unknown]
  - Decreased appetite [Unknown]
  - Somnolence [Unknown]
  - Neuropathy peripheral [Unknown]
  - Nausea [Unknown]
  - Fatigue [Unknown]
  - Dyspepsia [Unknown]
